FAERS Safety Report 5122672-9 (Version None)
Quarter: 2006Q4

REPORT INFORMATION
  Report Type: 
  Country: None (occurrence: None)
  Receive Date: 20061009
  Receipt Date: 20060925
  Transmission Date: 20070319
  Serious: Yes (Hospitalization, Other)
  Sender: FDA-Public Use
  Company Number: US-AMGEN-US194674

PATIENT
  Age: 4 Year
  Sex: Male

DRUGS (3)
  1. NEULASTA [Suspect]
     Indication: CHEMOTHERAPY
     Route: 065
     Dates: start: 20060909, end: 20060909
  2. ARA-C [Concomitant]
     Route: 065
     Dates: start: 20060906, end: 20060908
  3. ELSPAR [Concomitant]
     Route: 065

REACTIONS (2)
  - BLAST CELL COUNT INCREASED [None]
  - FEBRILE NEUTROPENIA [None]
